FAERS Safety Report 6529047-6 (Version None)
Quarter: 2009Q4

REPORT INFORMATION
  Report Type: 
  Country: None (occurrence: None)
  Receive Date: 20091224
  Receipt Date: 20091208
  Transmission Date: 20100525
  Serious: Yes (Other)
  Sender: FDA-Public Use
  Company Number: B0616927A

PATIENT
  Age: 38 Year
  Sex: Female

DRUGS (3)
  1. LAMOTRIGINE [Suspect]
     Indication: DEPRESSION
     Dosage: ORAL
     Route: 048
  2. OLANZAPINE [Concomitant]
  3. CITALOPRAM [Concomitant]

REACTIONS (2)
  - OBSESSIVE THOUGHTS [None]
  - SOCIAL PROBLEM [None]
